FAERS Safety Report 6688499-1 (Version None)
Quarter: 2010Q2

REPORT INFORMATION
  Report Type: 
  Country: None (occurrence: None)
  Receive Date: 20100420
  Receipt Date: 20100415
  Transmission Date: 20101027
  Serious: Yes (Other)
  Sender: FDA-Public Use
  Company Number: JP-BAYER-201011024BYL

PATIENT
  Age: 70 Year
  Sex: Male
  Weight: 57 kg

DRUGS (4)
  1. NEXAVAR [Suspect]
     Indication: HEPATIC NEOPLASM MALIGNANT
     Dosage: TOTAL DAILY DOSE: 800 MG  UNIT DOSE: 200 MG
     Route: 048
     Dates: start: 20100105, end: 20100215
  2. AMLODIN [Concomitant]
     Indication: HYPERTENSION
     Dosage: UNIT DOSE: 2.5 MG
     Route: 048
     Dates: start: 20040921
  3. COVERSYL [Concomitant]
     Indication: HYPERTENSION
     Dosage: UNIT DOSE: 2 MG
     Route: 048
     Dates: start: 20040921
  4. URSO 250 [Concomitant]
     Indication: HEPATITIS C
     Dosage: UNIT DOSE: 100 MG
     Route: 048
     Dates: start: 20040921

REACTIONS (1)
  - HEPATIC FUNCTION ABNORMAL [None]
